FAERS Safety Report 4829917-0 (Version None)
Quarter: 2005Q4

REPORT INFORMATION
  Report Type: 
  Country: None (occurrence: None)
  Receive Date: 20051115
  Receipt Date: 20051104
  Transmission Date: 20060501
  Serious: Yes (Hospitalization, Other)
  Sender: FDA-Public Use
  Company Number: 2005142984

PATIENT
  Age: 88 Year
  Sex: Male

DRUGS (6)
  1. NEURONTIN [Suspect]
     Indication: NEURALGIA
     Dosage: 500 MG (100 MG), ORAL
     Route: 048
     Dates: end: 20051007
  2. LYRICA [Suspect]
     Indication: NEURALGIA
     Dosage: 75 MG, ONCE, ORAL
     Route: 048
     Dates: start: 20051012, end: 20051012
  3. ALL OTHER THERAPEUTIC PRODUCTS (ALL OTHER THERAPEUTIC PRODUCTS) [Concomitant]
  4. DILTIAZEM [Concomitant]
  5. HYTRIN [Concomitant]
  6. FOLIC ACID [Concomitant]

REACTIONS (2)
  - GRAND MAL CONVULSION [None]
  - HYPOGLYCAEMIA [None]
